FAERS Safety Report 20836437 (Version 1)
Quarter: 2022Q2

REPORT INFORMATION
  Report Type: 
  Country: None (occurrence: None)
  Receive Date: 20220517
  Receipt Date: 20220517
  Transmission Date: 20220721
  Serious: No
  Sender: FDA-Public Use
  Company Number: CN-BoehringerIngelheim-2022-BI-162327

PATIENT
  Weight: 65 kg

DRUGS (2)
  1. ALTEPLASE [Suspect]
     Active Substance: ALTEPLASE
     Dates: start: 20220310
  2. TENECTEPLASE [Suspect]
     Active Substance: TENECTEPLASE
     Dates: start: 20220310

REACTIONS (2)
  - Carotid artery aneurysm [None]
  - Haemorrhagic cerebral infarction [None]

NARRATIVE: CASE EVENT DATE: 20220311
